FAERS Safety Report 18871509 (Version 1)
Quarter: 2021Q1

REPORT INFORMATION
  Report Type: Spontaneous
  Country: US (occurrence: US)
  Receive Date: 20210209
  Receipt Date: 20210209
  Transmission Date: 20210420
  Serious: Yes (Other)
  Sender: FDA-Public Use
  Company Number: None

PATIENT
  Age: 57 Year
  Sex: Female
  Weight: 72 kg

DRUGS (1)
  1. TALTZ [Suspect]
     Active Substance: IXEKIZUMAB
     Indication: PSORIASIS
     Dosage: ?          OTHER FREQUENCY:2 INJECTIONS OF 80;?
     Route: 058
     Dates: start: 20210208, end: 20210208

REACTIONS (2)
  - Injection site urticaria [None]
  - Injection site pain [None]

NARRATIVE: CASE EVENT DATE: 20210208
